FAERS Safety Report 21087788 (Version 3)
Quarter: 2022Q3

REPORT INFORMATION
  Report Type: Spontaneous
  Country: BR (occurrence: BR)
  Receive Date: 20220715
  Receipt Date: 20220829
  Transmission Date: 20221027
  Serious: Yes (Life-Threatening)
  Sender: FDA-Public Use
  Company Number: BR-NOVARTISPH-NVSC2022BR160556

PATIENT
  Sex: Male

DRUGS (1)
  1. METFORMIN HYDROCHLORIDE\VILDAGLIPTIN [Suspect]
     Active Substance: METFORMIN HYDROCHLORIDE\VILDAGLIPTIN
     Indication: Product used for unknown indication
     Dosage: UNK (50 MG/1000 MG 56 FCT)
     Route: 065

REACTIONS (5)
  - Hyperglycaemia [Recovering/Resolving]
  - Disturbance in attention [Recovering/Resolving]
  - Hunger [Recovering/Resolving]
  - Somnolence [Recovering/Resolving]
  - Drug ineffective [Recovering/Resolving]
